FAERS Safety Report 12435506 (Version 1)
Quarter: 2016Q2

REPORT INFORMATION
  Report Type: Spontaneous
  Country: US (occurrence: US)
  Receive Date: 20160603
  Receipt Date: 20160603
  Transmission Date: 20160815
  Serious: No
  Sender: FDA-Public Use
  Company Number: US-ROCHE-1604340

PATIENT
  Sex: Female

DRUGS (1)
  1. XELODA [Suspect]
     Active Substance: CAPECITABINE
     Indication: NEOPLASM MALIGNANT
     Dosage: 3 TABLETS IN THE MORNING AND 2 TABLETS IN THE EVENING?FOR 14 DAYS AND 4 DAYS OFF
     Route: 048
     Dates: start: 201406

REACTIONS (1)
  - Pain in extremity [Recovering/Resolving]
